FAERS Safety Report 7819008-9 (Version None)
Quarter: 2011Q4

REPORT INFORMATION
  Report Type: 
  Country: None (occurrence: None)
  Receive Date: 20111018
  Receipt Date: 20111013
  Transmission Date: 20120403
  Serious: Yes (Death, Other)
  Sender: FDA-Public Use
  Company Number: JP-JNJFOC-20090908170

PATIENT
  Sex: Female
  Weight: 55 kg

DRUGS (14)
  1. DOXORUBICIN HCL [Suspect]
     Route: 042
     Dates: start: 20090612, end: 20090612
  2. DOXORUBICIN HCL [Suspect]
     Route: 042
     Dates: start: 20090807, end: 20090807
  3. ATENOLOL [Concomitant]
     Indication: HYPERTENSION
     Route: 048
     Dates: start: 20080401, end: 20090904
  4. ATORVASTATIN CALCIUM [Concomitant]
     Indication: HYPERLIPIDAEMIA
     Route: 048
     Dates: start: 20080401, end: 20090904
  5. LOXOPROFEN SODIUM [Concomitant]
     Indication: CANCER PAIN
     Route: 048
     Dates: start: 20090123, end: 20090904
  6. LANSOPRAZOLE [Concomitant]
     Indication: PROPHYLAXIS
     Route: 048
     Dates: start: 20080401, end: 20090904
  7. FUROSEMIDE [Concomitant]
     Indication: PROPHYLAXIS
     Route: 048
     Dates: start: 20090612, end: 20090904
  8. PYRIDOXAL PHOSPHATE [Concomitant]
     Indication: PROPHYLAXIS
     Route: 048
     Dates: start: 20090515, end: 20090904
  9. CONCENTRATED RED CELLS [Concomitant]
     Route: 042
  10. DOXORUBICIN HCL [Suspect]
     Indication: OVARIAN CANCER RECURRENT
     Route: 042
     Dates: start: 20090515, end: 20090515
  11. DOXORUBICIN HCL [Suspect]
     Route: 042
     Dates: start: 20090710, end: 20090710
  12. CANDESARTAN CILEXETIL [Concomitant]
     Indication: HYPERTENSION
     Route: 048
     Dates: start: 20080401, end: 20090904
  13. CELECOXIB [Concomitant]
     Indication: PROPHYLAXIS
     Route: 048
     Dates: start: 20090123, end: 20090904
  14. MAGNESIUM OXIDE [Concomitant]
     Indication: CONSTIPATION
     Route: 048
     Dates: start: 20080401, end: 20090904

REACTIONS (2)
  - OVARIAN CANCER [None]
  - ERYTHROPENIA [None]
